FAERS Safety Report 17644536 (Version 1)
Quarter: 2020Q2

REPORT INFORMATION
  Report Type: Spontaneous
  Country: US (occurrence: US)
  Receive Date: 20200408
  Receipt Date: 20200408
  Transmission Date: 20200713
  Serious: No
  Sender: FDA-Public Use
  Company Number: US-MYLANLABS-2020M1034387

PATIENT
  Sex: Female
  Weight: 76 kg

DRUGS (1)
  1. XULANE [Suspect]
     Active Substance: ETHINYL ESTRADIOL\NORELGESTROMIN
     Indication: CONTRACEPTION
     Dosage: CHANGE WEEKLY, NO PATCH-FREE WEEK
     Route: 062

REACTIONS (5)
  - Skin irritation [Recovering/Resolving]
  - Scab [Recovering/Resolving]
  - Urticaria [Recovering/Resolving]
  - Off label use [Not Recovered/Not Resolved]
  - Product use issue [Recovered/Resolved]

NARRATIVE: CASE EVENT DATE: 2019
